FAERS Safety Report 25299809 (Version 1)
Quarter: 2025Q2

REPORT INFORMATION
  Report Type: Spontaneous
  Country: AU (occurrence: AU)
  Receive Date: 20250512
  Receipt Date: 20250512
  Transmission Date: 20250717
  Serious: Yes (Other)
  Sender: ALKEM
  Company Number: None

PATIENT
  Age: 33 Year
  Sex: Male

DRUGS (1)
  1. OLANZAPINE [Suspect]
     Active Substance: OLANZAPINE
     Indication: Product used for unknown indication
     Route: 065

REACTIONS (6)
  - Psychotic symptom [Unknown]
  - Drug dependence [Unknown]
  - Actinic keratosis [Unknown]
  - Scab [Unknown]
  - Urticaria [Unknown]
  - Product use in unapproved indication [Unknown]
